FAERS Safety Report 7329716-4 (Version None)
Quarter: 2011Q1

REPORT INFORMATION
  Report Type: 
  Country: None (occurrence: None)
  Receive Date: 20110303
  Receipt Date: 20110221
  Transmission Date: 20110831
  Serious: Yes (Hospitalization)
  Sender: FDA-Public Use
  Company Number: PHHO2011FR00794

PATIENT
  Sex: Female

DRUGS (7)
  1. SIMULECT [Concomitant]
     Dosage: UNK
     Dates: start: 20100816
  2. NEORAL [Suspect]
     Indication: RENAL TRANSPLANT
     Dosage: UNK
     Route: 048
     Dates: start: 20100812, end: 20100901
  3. SOLUPRED [Concomitant]
     Indication: RENAL TRANSPLANT
     Dosage: 40 MG, UNK
     Dates: start: 20100813
  4. SANDIMMUNE [Suspect]
     Indication: RENAL TRANSPLANT
     Dosage: 1.85 MG, BID
     Route: 048
     Dates: start: 20100927
  5. MYCOPHENOLATE MOFETIL [Concomitant]
     Indication: RENAL TRANSPLANT
     Dosage: 500 MG, BID
     Route: 048
     Dates: start: 20100812
  6. SIMULECT [Concomitant]
     Indication: RENAL TRANSPLANT
     Dosage: UNK
     Dates: start: 20100812
  7. SOLU-MEDROL [Concomitant]
     Indication: RENAL TRANSPLANT
     Dosage: 500 MG, UNK
     Dates: start: 20100812, end: 20100812

REACTIONS (8)
  - ARTHRALGIA [None]
  - HYPONATRAEMIA [None]
  - PYREXIA [None]
  - DIARRHOEA [None]
  - ARTHRITIS [None]
  - CYTOLYTIC HEPATITIS [None]
  - HYPOKALAEMIA [None]
  - VOMITING [None]
